FAERS Safety Report 8036280-3 (Version None)
Quarter: 2012Q1

REPORT INFORMATION
  Report Type: 
  Country: None (occurrence: None)
  Receive Date: 20120111
  Receipt Date: 20120106
  Transmission Date: 20120608
  Serious: Yes (Hospitalization, Other)
  Sender: FDA-Public Use
  Company Number: PHHY2011BR107544

PATIENT
  Sex: Female

DRUGS (6)
  1. OMEPRAZOL ^ACYFABRIK^ [Concomitant]
     Dosage: 1 DF, QD IN MORNING
  2. FUROSEMIDE [Concomitant]
     Dosage: 2 DF, QD
  3. FORMOTEROL FUMARATE [Suspect]
     Indication: LUNG DISORDER
  4. CARVEDILOL [Concomitant]
     Indication: HYPERTENSION
     Dosage: 2 DF, QD
     Dates: start: 20111001
  5. DIGOXIN [Concomitant]
     Indication: CARDIAC DISORDER
     Dosage: 1 DF, QD
  6. ASPIRIN [Concomitant]

REACTIONS (6)
  - PNEUMONIA [None]
  - URINARY RETENTION [None]
  - LUNG HYPERINFLATION [None]
  - URINE OUTPUT DECREASED [None]
  - BRONCHOPNEUMONIA [None]
  - CARDIAC DISORDER [None]
